FAERS Safety Report 14309971 (Version 2)
Quarter: 2018Q1

REPORT INFORMATION
  Report Type: Spontaneous
  Country: US (occurrence: US)
  Receive Date: 20171220
  Receipt Date: 20180120
  Transmission Date: 20180509
  Serious: No
  Sender: FDA-Public Use
  Company Number: US-BIOMARINAP-US-2017-116471

PATIENT
  Age: 32 Year
  Sex: Male
  Weight: 53 kg

DRUGS (1)
  1. VIMIZIM [Suspect]
     Active Substance: ELOSULFASE ALFA
     Indication: PRODUCT USED FOR UNKNOWN INDICATION
     Dosage: 115 MG, QW
     Route: 042
     Dates: start: 20140909

REACTIONS (4)
  - Regurgitation [Unknown]
  - Headache [Unknown]
  - Nasal congestion [Unknown]
  - Lethargy [Unknown]

NARRATIVE: CASE EVENT DATE: 20171206
